FAERS Safety Report 17097247 (Version 1)
Quarter: 2019Q4

REPORT INFORMATION
  Report Type: Spontaneous
  Country: US (occurrence: US)
  Receive Date: 20191202
  Receipt Date: 20191202
  Transmission Date: 20200122
  Serious: Yes (Other)
  Sender: FDA-Public Use
  Company Number: US-HORMOSAN PHARMA GMBH-2019-07690

PATIENT
  Age: 68 Year
  Sex: Female
  Weight: 50.79 kg

DRUGS (10)
  1. LEVETIRACETAM TABLETS USP, 250 MG [Suspect]
     Active Substance: LEVETIRACETAM
     Indication: SEIZURE
     Dosage: 250 MILLIGRAM, QD
     Route: 048
     Dates: start: 201811, end: 20190502
  2. LEVETIRACETAM TABLETS USP, 500 MG [Suspect]
     Active Substance: LEVETIRACETAM
     Indication: SEIZURE
     Dosage: 500 MILLIGRAM, QD
     Route: 048
     Dates: start: 20191116
  3. MAGNESIUM [Concomitant]
     Active Substance: MAGNESIUM
     Indication: SUPPLEMENTATION THERAPY
     Dosage: UNK
     Route: 048
  4. MULTIPLE VITAMINS [Concomitant]
     Active Substance: VITAMINS
     Indication: SUPPLEMENTATION THERAPY
     Dosage: UNK
     Route: 048
  5. CALCIUM [Concomitant]
     Active Substance: CALCIUM
     Indication: SUPPLEMENTATION THERAPY
     Dosage: UNK
     Route: 048
  6. JUICE PLUS [Concomitant]
     Active Substance: DIETARY SUPPLEMENT
     Indication: MEMORY IMPAIRMENT
     Dosage: UNK
     Route: 048
  7. CYANOCOBALAMIN. [Concomitant]
     Active Substance: CYANOCOBALAMIN
     Indication: SUPPLEMENTATION THERAPY
     Dosage: UNK
     Route: 048
  8. VITAMIN D NOS [Concomitant]
     Active Substance: VITAMIN D NOS
     Dosage: UNK
     Route: 048
  9. CBD OIL [Interacting]
     Active Substance: CANNABIDIOL\HERBALS
     Indication: PRODUCT USED FOR UNKNOWN INDICATION
     Dosage: UNK
     Route: 065
  10. KEPPRA [Suspect]
     Active Substance: LEVETIRACETAM
     Indication: SEIZURE
     Dosage: 500 MILLIGRAM, QD
     Route: 065
     Dates: start: 2019, end: 20191115

REACTIONS (11)
  - Stress [Not Recovered/Not Resolved]
  - Seizure [Unknown]
  - Sinus disorder [Not Recovered/Not Resolved]
  - Drug interaction [Unknown]
  - Herbal interaction [Unknown]
  - Dizziness [Recovering/Resolving]
  - Depression [Not Recovered/Not Resolved]
  - Fatigue [Recovering/Resolving]
  - Road traffic accident [Unknown]
  - Taste disorder [Not Recovered/Not Resolved]
  - Cough [Not Recovered/Not Resolved]

NARRATIVE: CASE EVENT DATE: 201811
